FAERS Safety Report 10180403 (Version 1)
Quarter: 2014Q2

REPORT INFORMATION
  Report Type: Spontaneous
  Country: US (occurrence: US)
  Receive Date: 20140519
  Receipt Date: 20140519
  Transmission Date: 20141212
  Serious: Yes (Other)
  Sender: FDA-Public Use
  Company Number: US-AMGEN-USASP2013083744

PATIENT
  Age: 52 Year
  Sex: Female

DRUGS (1)
  1. PROLIA [Suspect]
     Indication: BONE LOSS
     Dosage: UNK
     Route: 065
     Dates: start: 201311

REACTIONS (2)
  - Arthralgia [Unknown]
  - Musculoskeletal pain [Unknown]
